FAERS Safety Report 20327731 (Version 1)
Quarter: 2022Q1

REPORT INFORMATION
  Report Type: Spontaneous
  Country: US (occurrence: None)
  Receive Date: 20220111
  Receipt Date: 20220111
  Transmission Date: 20220423
  Serious: No
  Sender: FDA-Public Use
  Company Number: None

PATIENT
  Age: 28 Year
  Sex: Female
  Weight: 80.55 kg

DRUGS (1)
  1. AJOVY [Suspect]
     Active Substance: FREMANEZUMAB-VFRM
     Indication: Migraine
     Dosage: FREQUENCY : MONTHLY;?
     Route: 058

REACTIONS (13)
  - Erythema [None]
  - Swelling [None]
  - Pruritus [None]
  - Pyrexia [None]
  - Arthralgia [None]
  - Musculoskeletal stiffness [None]
  - Dizziness [None]
  - Syncope [None]
  - Chest discomfort [None]
  - Dyspnoea [None]
  - Dysphagia [None]
  - Joint stiffness [None]
  - Myalgia [None]

NARRATIVE: CASE EVENT DATE: 20220109
